FAERS Safety Report 4384191-7 (Version None)
Quarter: 2004Q2

REPORT INFORMATION
  Report Type: 
  Country: None (occurrence: None)
  Receive Date: 20040623
  Receipt Date: 20040623
  Transmission Date: 20050107
  Serious: Yes (Hospitalization)
  Sender: FDA-Public Use
  Company Number: None

PATIENT
  Age: 51 Year
  Sex: Male
  Weight: 68.0396 kg

DRUGS (2)
  1. DOCETAXEL 65MG AVENTIS [Suspect]
     Indication: LUNG NEOPLASM MALIGNANT
     Dosage: 35 MG/M2 INTRAVENOUS
     Route: 042
     Dates: start: 20040526, end: 20040602
  2. CARBOPLATIN [Suspect]
     Indication: LUNG NEOPLASM MALIGNANT
     Dosage: 6 AUC INTRAVENOUS
     Route: 042
     Dates: start: 20040526, end: 20040602

REACTIONS (1)
  - NO ADVERSE EFFECT [None]
